FAERS Safety Report 12113377 (Version 2)
Quarter: 2016Q1

REPORT INFORMATION
  Report Type: Spontaneous
  Country: EG (occurrence: EG)
  Receive Date: 20160225
  Receipt Date: 20160304
  Transmission Date: 20160526
  Serious: Yes (Other)
  Sender: FDA-Public Use
  Company Number: EG-ROCHE-1716015

PATIENT
  Sex: Male

DRUGS (8)
  1. XOLAIR [Suspect]
     Active Substance: OMALIZUMAB
     Indication: CHRONIC SPONTANEOUS URTICARIA
     Route: 058
     Dates: start: 20150520
  2. XOLAIR [Suspect]
     Active Substance: OMALIZUMAB
     Dosage: SIXTH DOSE
     Route: 058
  3. XOLAIR [Suspect]
     Active Substance: OMALIZUMAB
     Dosage: SEVENTH DOSE
     Route: 058
  4. XOLAIR [Suspect]
     Active Substance: OMALIZUMAB
     Dosage: FOURTH DOSE
     Route: 058
  5. XOLAIR [Suspect]
     Active Substance: OMALIZUMAB
     Dosage: FIFTH DOSE
     Route: 058
  6. SOLU-CORTEF [Concomitant]
     Active Substance: HYDROCORTISONE SODIUM SUCCINATE
  7. AVIL [Concomitant]
     Active Substance: PHENIRAMINE
  8. SOLUPRED (EGYPT) [Concomitant]

REACTIONS (7)
  - Rash [Recovered/Resolved]
  - Pain in extremity [Unknown]
  - Intervertebral disc protrusion [Unknown]
  - Anaphylactic reaction [Unknown]
  - Skin disorder [Unknown]
  - Back pain [Not Recovered/Not Resolved]
  - Urticaria [Unknown]
